FAERS Safety Report 6210769-1 (Version None)
Quarter: 2009Q2

REPORT INFORMATION
  Report Type: 
  Country: None (occurrence: None)
  Receive Date: 20090601
  Receipt Date: 20090521
  Transmission Date: 20091009
  Serious: Yes (Hospitalization)
  Sender: FDA-Public Use
  Company Number: US-BAYER-200913487NA

PATIENT
  Age: 66 Year
  Sex: Male
  Weight: 75 kg

DRUGS (8)
  1. AVELOX [Suspect]
     Indication: SINUSITIS
     Dates: start: 20060601, end: 20060601
  2. KETEK [Suspect]
     Indication: DRUG USE FOR UNKNOWN INDICATION
     Dates: start: 20060601, end: 20060601
  3. LOTREL [Concomitant]
  4. BENAZEPRIL HYDROCHLORIDE [Concomitant]
  5. LIPITOR [Concomitant]
  6. ASPIRIN [Concomitant]
  7. LEVAQUIN [Concomitant]
  8. WINE [Concomitant]

REACTIONS (11)
  - ANAEMIA [None]
  - DYSURIA [None]
  - HEPATIC ENZYME INCREASED [None]
  - MYALGIA [None]
  - PYREXIA [None]
  - SINUS DISORDER [None]
  - TEMPOROMANDIBULAR JOINT SYNDROME [None]
  - TESTICULAR SWELLING [None]
  - TREMOR [None]
  - VOMITING [None]
  - WHITE BLOOD CELL COUNT INCREASED [None]
